FAERS Safety Report 16459127 (Version 1)
Quarter: 2019Q2

REPORT INFORMATION
  Report Type: Spontaneous
  Country: US (occurrence: US)
  Receive Date: 20190620
  Receipt Date: 20190620
  Transmission Date: 20190711
  Serious: Yes (Life-Threatening, Hospitalization, Other)
  Sender: FDA-Public Use
  Company Number: PHHY2019US140427

PATIENT
  Age: 24 Year
  Sex: Male

DRUGS (1)
  1. METOPROLOL. [Suspect]
     Active Substance: METOPROLOL
     Indication: HYPERTENSION
     Dosage: 1 EXTRA TABLET
     Route: 065

REACTIONS (7)
  - Renal failure [Unknown]
  - Condition aggravated [Unknown]
  - Bradycardia [Recovered/Resolved]
  - Toxicity to various agents [Unknown]
  - Hypotension [Recovered/Resolved]
  - Hyperkalaemia [Unknown]
  - Mental disorder [Unknown]
